FAERS Safety Report 7586420-5 (Version None)
Quarter: 2011Q3

REPORT INFORMATION
  Report Type: 
  Country: None (occurrence: None)
  Receive Date: 20110701
  Receipt Date: 20110623
  Transmission Date: 20111222
  Serious: Yes (Death)
  Sender: FDA-Public Use
  Company Number: B0713249A

PATIENT
  Sex: Female
  Weight: 14 kg

DRUGS (33)
  1. FLUMARIN [Concomitant]
     Route: 042
     Dates: start: 20071128, end: 20071129
  2. LOPEMIN [Concomitant]
     Route: 048
     Dates: start: 20071127, end: 20071211
  3. HACHIAZULE [Concomitant]
     Route: 002
     Dates: start: 20071129, end: 20071129
  4. FUROSEMIDE [Concomitant]
     Route: 042
     Dates: start: 20071121, end: 20071124
  5. GLUCOSE [Concomitant]
     Route: 042
     Dates: start: 20071125, end: 20071130
  6. ALKERAN [Suspect]
     Indication: STEM CELL TRANSPLANT
     Dosage: 30MGM2 PER DAY
     Route: 042
     Dates: start: 20071121, end: 20071122
  7. SOLDEM [Concomitant]
     Dosage: 1IUAX PER DAY
     Route: 042
     Dates: start: 20071128, end: 20071129
  8. FUNGUARD [Concomitant]
     Dosage: 1IUAX PER DAY
     Route: 042
     Dates: start: 20071128, end: 20071213
  9. PENTAZOCINE LACTATE [Concomitant]
     Route: 042
     Dates: start: 20071129, end: 20071201
  10. SULFAMETHOXAZOLE [Concomitant]
     Route: 048
     Dates: start: 20071128, end: 20071129
  11. ALKERAN [Suspect]
     Dosage: 30MGM2 PER DAY
     Route: 042
     Dates: start: 20071128, end: 20071129
  12. MINOCYCLINE HCL [Concomitant]
     Route: 042
     Dates: start: 20071129, end: 20071202
  13. FUROSEMIDE [Concomitant]
     Route: 048
     Dates: end: 20080115
  14. SULFAMETHOXAZOLE [Concomitant]
     Route: 048
     Dates: start: 20071121, end: 20071122
  15. WATER FOR INJECTIONS [Concomitant]
     Dates: start: 20071129, end: 20071129
  16. THIOTEPA [Suspect]
     Indication: STEM CELL TRANSPLANT
     Dosage: 120MGM2 PER DAY
     Route: 042
     Dates: start: 20071121, end: 20071122
  17. THIOTEPA [Suspect]
     Dosage: 120MGM2 PER DAY
     Route: 042
     Dates: start: 20071128, end: 20071129
  18. ISOTONIC SODIUM CHLORIDE SOLUTION [Concomitant]
     Route: 042
     Dates: start: 20071128, end: 20071129
  19. SOLDEM [Concomitant]
     Dosage: 1IUAX PER DAY
     Route: 042
     Dates: start: 20071121, end: 20071122
  20. POLARAMINE [Concomitant]
     Route: 042
     Dates: start: 20071129, end: 20071129
  21. MEROPENEM [Concomitant]
     Route: 042
     Dates: start: 20071129, end: 20071213
  22. CONIEL [Concomitant]
     Route: 048
     Dates: start: 20071101, end: 20071231
  23. POTASSIUM IODIDE [Concomitant]
     Route: 048
     Dates: end: 20071121
  24. XYLOCAINE [Concomitant]
     Route: 048
     Dates: start: 20071129, end: 20071129
  25. WHITE SOFT PARAFFIN [Concomitant]
     Route: 061
     Dates: start: 20071129, end: 20071129
  26. FUROSEMIDE [Concomitant]
     Route: 042
     Dates: start: 20071128, end: 20071205
  27. ISOTONIC SODIUM CHLORIDE SOLUTION [Concomitant]
     Route: 042
     Dates: start: 20071121, end: 20071122
  28. VITAMEDIN [Concomitant]
     Dosage: 1IUAX PER DAY
     Route: 042
     Dates: start: 20071128, end: 20071204
  29. SIMPLE SYRUP [Concomitant]
     Route: 048
     Dates: end: 20080115
  30. HEPARIN [Concomitant]
     Route: 042
     Dates: start: 20071120, end: 20080104
  31. ZOFRAN [Concomitant]
     Dosage: 2IUAX PER DAY
     Route: 042
     Dates: start: 20071121, end: 20071124
  32. ZOFRAN [Concomitant]
     Dosage: 2IUAX PER DAY
     Route: 042
     Dates: start: 20071128, end: 20071201
  33. URSO 250 [Concomitant]
     Route: 048
     Dates: start: 20071121, end: 20080109

REACTIONS (2)
  - STOMATITIS [None]
  - PNEUMONIA CYTOMEGALOVIRAL [None]
